FAERS Safety Report 5254747-8 (Version None)
Quarter: 2007Q1

REPORT INFORMATION
  Report Type: 
  Country: None (occurrence: None)
  Receive Date: 20070228
  Receipt Date: 20070221
  Transmission Date: 20070707
  Serious: Yes (Life-Threatening)
  Sender: FDA-Public Use
  Company Number: 2007SP000572

PATIENT
  Age: 56 Year
  Sex: Male

DRUGS (4)
  1. LUNESTA [Suspect]
     Dosage: 3 MG;ORAL
     Route: 048
  2. CYMBALTA [Concomitant]
  3. WELLBUTRIN [Concomitant]
  4. PROVIGIL [Concomitant]

REACTIONS (5)
  - HYPOVENTILATION [None]
  - INAPPROPRIATE SCHEDULE OF DRUG ADMINISTRATION [None]
  - LETHARGY [None]
  - LOSS OF CONSCIOUSNESS [None]
  - RESPIRATORY RATE DECREASED [None]
